FAERS Safety Report 13523733 (Version 2)
Quarter: 2017Q4

REPORT INFORMATION
  Report Type: Spontaneous
  Country: US (occurrence: US)
  Receive Date: 20170508
  Receipt Date: 20171207
  Transmission Date: 20180320
  Serious: No
  Sender: FDA-Public Use
  Company Number: US-VIFOR (INTERNATIONAL) INC.-VIT-2017-02719

PATIENT
  Age: 82 Year
  Sex: Female

DRUGS (14)
  1. SODIUM BICARBONATE. [Concomitant]
     Active Substance: SODIUM BICARBONATE
  2. LEVOTHYROXIN [Concomitant]
     Active Substance: LEVOTHYROXINE
  3. VELTASSA [Suspect]
     Active Substance: PATIROMER
     Indication: HYPERKALAEMIA
     Route: 048
     Dates: start: 20160225
  4. VITAMINS [Concomitant]
     Active Substance: VITAMINS
  5. FERROUS SULFATE. [Concomitant]
     Active Substance: FERROUS SULFATE
  6. SIMVASTATIN. [Concomitant]
     Active Substance: SIMVASTATIN
  7. MIRALAX [Concomitant]
     Active Substance: POLYETHYLENE GLYCOL 3350
  8. HYDRALAZINE [Concomitant]
     Active Substance: HYDRALAZINE HYDROCHLORIDE
  9. KAYEXALATE [Concomitant]
     Active Substance: SODIUM POLYSTYRENE SULFONATE
  10. AMLODIPINE [Concomitant]
     Active Substance: AMLODIPINE BESYLATE
  11. ATENOLOL. [Concomitant]
     Active Substance: ATENOLOL
  12. VELTASSA [Suspect]
     Active Substance: PATIROMER
     Dates: start: 201702
  13. FUROSEMIDE. [Concomitant]
     Active Substance: FUROSEMIDE
  14. ALLOPURINOL. [Concomitant]
     Active Substance: ALLOPURINOL

REACTIONS (2)
  - Inappropriate schedule of drug administration [Unknown]
  - Constipation [Unknown]

NARRATIVE: CASE EVENT DATE: 201602
